FAERS Safety Report 7393466-9 (Version None)
Quarter: 2011Q2

REPORT INFORMATION
  Report Type: 
  Country: None (occurrence: None)
  Receive Date: 20110405
  Receipt Date: 20110322
  Transmission Date: 20111010
  Serious: Yes (Hospitalization, Other)
  Sender: FDA-Public Use
  Company Number: US-BAYER-2011-013637

PATIENT
  Sex: Female

DRUGS (2)
  1. BETASERON [Suspect]
     Indication: RELAPSING-REMITTING MULTIPLE SCLEROSIS
     Dosage: 8 MIU, QOD
     Route: 058
     Dates: start: 19940505
  2. LIPITOR [Concomitant]
     Dosage: 80 MG, QD

REACTIONS (10)
  - GLAUCOMA [None]
  - INJECTION SITE HAEMATOMA [None]
  - CAROTID ARTERY STENOSIS [None]
  - DYSPNOEA [None]
  - CHROMATOPSIA [None]
  - DIABETES MELLITUS [None]
  - DIABETES MELLITUS INADEQUATE CONTROL [None]
  - INJECTION SITE RASH [None]
  - AORTIC VALVE STENOSIS [None]
  - HYPERTENSION [None]
